FAERS Safety Report 10431932 (Version 2)
Quarter: 2014Q3

REPORT INFORMATION
  Report Type: Spontaneous
  Country: US (occurrence: US)
  Receive Date: 20140905
  Receipt Date: 20140910
  Transmission Date: 20150326
  Serious: No
  Sender: FDA-Public Use
  Company Number: US-009507513-1409USA000199

PATIENT
  Sex: Female

DRUGS (1)
  1. STERILE DILUENT [Suspect]
     Active Substance: WATER

REACTIONS (4)
  - Laceration [Unknown]
  - Product quality issue [Unknown]
  - Product package associated injury [Unknown]
  - Accidental exposure to product [Unknown]
